FAERS Safety Report 8236435-9 (Version None)
Quarter: 2012Q1

REPORT INFORMATION
  Report Type: 
  Country: None (occurrence: None)
  Receive Date: 20120327
  Receipt Date: 20120321
  Transmission Date: 20120608
  Serious: No
  Sender: FDA-Public Use
  Company Number: US-PFIZER INC-2012074022

PATIENT
  Sex: Female
  Weight: 97.506 kg

DRUGS (4)
  1. PERCOCET [Concomitant]
     Dosage: UNK, AS NEEDED
  2. LYRICA [Suspect]
     Indication: PAIN
     Dosage: 150 MG, 2X/DAY
     Route: 048
  3. LEVOTHROID [Concomitant]
     Dosage: UNK, 1X/DAY
  4. ZOLOFT [Concomitant]
     Dosage: UNK, 1X/DAY

REACTIONS (1)
  - LARYNGITIS [None]
